FAERS Safety Report 6969992-0 (Version None)
Quarter: 2010Q3

REPORT INFORMATION
  Report Type: 
  Country: None (occurrence: None)
  Receive Date: 20100908
  Receipt Date: 20100827
  Transmission Date: 20110219
  Serious: Yes (Hospitalization, Other)
  Sender: FDA-Public Use
  Company Number: GR-ELI_LILLY_AND_COMPANY-GR201008008120

PATIENT
  Sex: Male
  Weight: 70 kg

DRUGS (13)
  1. NECITUMUMAB (11F8) (LY3012211) [Suspect]
     Indication: NON-SMALL CELL LUNG CANCER STAGE IV
     Dosage: 800 MG, UNK
     Dates: start: 20100818
  2. GEMCITABINE HCL [Suspect]
     Indication: NON-SMALL CELL LUNG CANCER STAGE IV
     Dosage: 2250 MG, UNK
     Dates: start: 20100818
  3. CISPLATIN [Suspect]
     Indication: NON-SMALL CELL LUNG CANCER STAGE IV
     Dosage: 135 MG, UNK
     Dates: start: 20100818
  4. FENISTIL [Concomitant]
     Dates: start: 20100825
  5. FUCIDINE CAP [Concomitant]
     Dates: start: 20100825
  6. DEXAMETHASONE [Concomitant]
     Dosage: 4 MG, 4/D
     Dates: start: 20100813
  7. INNOHEP [Concomitant]
     Dates: start: 20100813, end: 20100827
  8. GLUCOPHAGE [Concomitant]
     Dosage: 850 MG, 3/D
  9. DIAMICRON [Concomitant]
     Dosage: 30 MG, UNK
  10. ACCURETIC [Concomitant]
  11. NORVASC [Concomitant]
     Dosage: 5 MG, DAILY (1/D)
  12. ZOCOR [Concomitant]
     Dosage: 10 MG, DAILY (1/D)
  13. ISCOVER [Concomitant]
     Dosage: 75 MG, DAILY (1/D)

REACTIONS (2)
  - FEBRILE NEUTROPENIA [None]
  - HAEMOPTYSIS [None]
